FAERS Safety Report 6127517-6 (Version None)
Quarter: 2009Q1

REPORT INFORMATION
  Report Type: 
  Country: None (occurrence: None)
  Receive Date: 20090319
  Receipt Date: 20090304
  Transmission Date: 20090719
  Serious: Yes (Hospitalization)
  Sender: FDA-Public Use
  Company Number: 2009GB0007

PATIENT
  Age: 13 Year
  Sex: Female

DRUGS (4)
  1. ORFADIN [Suspect]
     Indication: TYROSINAEMIA
     Dosage: 30 MG ORAL
     Route: 048
     Dates: start: 20090202, end: 20090206
  2. ORFADIN [Suspect]
     Indication: VOMITING
     Dosage: 30 MG ORAL
     Route: 048
     Dates: start: 20090202, end: 20090206
  3. ORFADIN [Suspect]
     Indication: TYROSINAEMIA
     Dosage: 30 MG ORAL
     Route: 048
     Dates: start: 19960401
  4. ORFADIN [Suspect]
     Indication: VOMITING
     Dosage: 30 MG ORAL
     Route: 048
     Dates: start: 19960401

REACTIONS (2)
  - VIRAL INFECTION [None]
  - VOMITING [None]
